FAERS Safety Report 13752387 (Version 1)
Quarter: 2017Q3

REPORT INFORMATION
  Report Type: Spontaneous
  Country: US (occurrence: US)
  Receive Date: 20170713
  Receipt Date: 20170713
  Transmission Date: 20171127
  Serious: No
  Sender: FDA-Public Use
  Company Number: US-JAZZ-2017-US-007107

PATIENT
  Sex: Female

DRUGS (29)
  1. TRAZODONE [Concomitant]
     Active Substance: TRAZODONE HYDROCHLORIDE
  2. TIZANIDINE HCL [Concomitant]
     Active Substance: TIZANIDINE HYDROCHLORIDE
  3. LUNESTA [Concomitant]
     Active Substance: ESZOPICLONE
  4. ZOLOFT [Concomitant]
     Active Substance: SERTRALINE HYDROCHLORIDE
  5. TRAMADOL HCL [Concomitant]
     Active Substance: TRAMADOL HYDROCHLORIDE
  6. VAGIFEM [Concomitant]
     Active Substance: ESTRADIOL
  7. XYREM [Suspect]
     Active Substance: SODIUM OXYBATE
     Indication: NARCOLEPSY
     Dosage: 4.5G, BID
     Route: 048
     Dates: start: 201201, end: 201212
  8. FIBERCON [Concomitant]
     Active Substance: CALCIUM POLYCARBOPHIL
  9. FISH OIL CONCENTRATE [Concomitant]
     Active Substance: FISH OIL
  10. LIDOCAINE HCL [Concomitant]
     Active Substance: LIDOCAINE HYDROCHLORIDE
  11. MIRALAX [Concomitant]
     Active Substance: POLYETHYLENE GLYCOL 3350
  12. LASIX [Concomitant]
     Active Substance: FUROSEMIDE
  13. OMEPRAZOLE. [Concomitant]
     Active Substance: OMEPRAZOLE
  14. VALIUM [Concomitant]
     Active Substance: DIAZEPAM
  15. PYRIDIUM [Concomitant]
     Active Substance: PHENAZOPYRIDINE
  16. XYREM [Suspect]
     Active Substance: SODIUM OXYBATE
     Indication: CATAPLEXY
     Dosage: DOSE ADJUSTMENT
     Route: 048
     Dates: start: 201212, end: 201307
  17. XYREM [Suspect]
     Active Substance: SODIUM OXYBATE
     Dosage: 4.5G, BID
     Route: 048
     Dates: start: 201308
  18. TESTOSTERONE. [Concomitant]
     Active Substance: TESTOSTERONE
  19. DYAZIDE [Concomitant]
     Active Substance: HYDROCHLOROTHIAZIDE\TRIAMTERENE
  20. LORATADINE. [Concomitant]
     Active Substance: LORATADINE
  21. RITALIN [Concomitant]
     Active Substance: METHYLPHENIDATE HYDROCHLORIDE
  22. HYDROXYZINE HCL [Concomitant]
     Active Substance: HYDROXYZINE HYDROCHLORIDE
  23. ESTROGEL [Concomitant]
     Active Substance: ESTRADIOL
  24. VALTREX [Concomitant]
     Active Substance: VALACYCLOVIR HYDROCHLORIDE
  25. GABAPENTIN. [Concomitant]
     Active Substance: GABAPENTIN
  26. VENTOLIN HFA [Concomitant]
     Active Substance: ALBUTEROL SULFATE
  27. ADIPEX-P [Concomitant]
     Active Substance: PHENTERMINE HYDROCHLORIDE
  28. DEXILANT [Concomitant]
     Active Substance: DEXLANSOPRAZOLE
  29. CALTRATE 600+D [Concomitant]

REACTIONS (2)
  - Concussion [Recovering/Resolving]
  - Fall [Recovered/Resolved]
